FAERS Safety Report 18634558 (Version 1)
Quarter: 2020Q4

REPORT INFORMATION
  Report Type: Spontaneous
  Country: US (occurrence: US)
  Receive Date: 20201217
  Receipt Date: 20201217
  Transmission Date: 20210114
  Serious: No
  Sender: FDA-Public Use
  Company Number: None

PATIENT
  Age: 89 Year
  Sex: Male

DRUGS (1)
  1. ABIRATERONE TAB 250MG [Suspect]
     Active Substance: ABIRATERONE
     Route: 046
     Dates: start: 20200331, end: 20200911

REACTIONS (6)
  - Drug ineffective [None]
  - Dizziness [None]
  - Fall [None]
  - Adverse drug reaction [None]
  - Fatigue [None]
  - Prostatic specific antigen increased [None]

NARRATIVE: CASE EVENT DATE: 20201021
